FAERS Safety Report 17461525 (Version 1)
Quarter: 2020Q1

REPORT INFORMATION
  Report Type: Spontaneous
  Country: US (occurrence: US)
  Receive Date: 20200213
  Receipt Date: 20200213
  Transmission Date: 20200409
  Serious: Yes (Other)
  Sender: FDA-Public Use
  Company Number: None

PATIENT
  Age: 53 Year
  Sex: Female

DRUGS (7)
  1. HYDROCODONE-ACETAMINOPHEN [Concomitant]
     Active Substance: ACETAMINOPHEN\HYDROCODONE
  2. SOMA [Concomitant]
     Active Substance: CARISOPRODOL
  3. CARISOPRODOL 350MG [Suspect]
     Active Substance: CARISOPRODOL
     Indication: MUSCLE SPASMS
     Dosage: ?          OTHER FREQUENCY:6-8 HRS;?
     Route: 048
     Dates: start: 20181112, end: 20190826
  4. EPIPEN [Concomitant]
     Active Substance: EPINEPHRINE
  5. OXYCONTIN [Concomitant]
     Active Substance: OXYCODONE HYDROCHLORIDE
  6. BENADRYL [Concomitant]
     Active Substance: DIPHENHYDRAMINE HYDROCHLORIDE
  7. BUTALBITAL-ASA-CAFFEINE [Concomitant]

REACTIONS (5)
  - Pharyngeal swelling [None]
  - Peripheral swelling [None]
  - Swelling face [None]
  - Swollen tongue [None]
  - Product substitution issue [None]

NARRATIVE: CASE EVENT DATE: 20190813
